FAERS Safety Report 7523864-1 (Version None)
Quarter: 2011Q2

REPORT INFORMATION
  Report Type: 
  Country: None (occurrence: None)
  Receive Date: 20110603
  Receipt Date: 20110602
  Transmission Date: 20111010
  Serious: Yes (Other)
  Sender: FDA-Public Use
  Company Number: GB-ABBOTT-11P-167-0729696-00

PATIENT
  Age: 41 Year
  Sex: Female

DRUGS (2)
  1. KALETRA [Suspect]
     Indication: ANTIRETROVIRAL THERAPY
     Dosage: TAB/CAPS TAKEN AT CONCEPTION
     Route: 048
     Dates: start: 20050501
  2. COMBIVIR [Suspect]
     Indication: ANTIRETROVIRAL THERAPY
     Dosage: TAB/CAPS TAKEN AT CONCEPTION
     Route: 048
     Dates: start: 20050101

REACTIONS (1)
  - ABORTION SPONTANEOUS [None]
